FAERS Safety Report 22118541 (Version 1)
Quarter: 2023Q1

REPORT INFORMATION
  Report Type: Other
  Country: US (occurrence: None)
  Receive Date: 20230321
  Receipt Date: 20230321
  Transmission Date: 20230417
  Serious: Yes (Other)
  Sender: FDA-Public Use
  Company Number: US-ROCHE-3312610

PATIENT
  Age: 66 Year
  Sex: Male

DRUGS (4)
  1. RITUXAN [Suspect]
     Active Substance: RITUXIMAB
     Indication: Giant cell arteritis
     Dosage: INFUSE 750MG INTRAVENOUSLY ONCE A WEEK FOR 4 DOSES
     Route: 042
  2. RITUXAN [Suspect]
     Active Substance: RITUXIMAB
     Dosage: INFUSE 750MG INTRAVENOUSLY ONCE A WEEK FOR 4 DOSES
     Route: 042
  3. ACTEMRA [Suspect]
     Active Substance: TOCILIZUMAB
     Indication: Giant cell arteritis
     Dosage: INFUSE 640MG INTRAVENOUSLY EVERY 4 WEEK(S)
     Route: 042
  4. ACTEMRA [Suspect]
     Active Substance: TOCILIZUMAB
     Dosage: INFUSE 640MG INTRAVENOUSLY EVERY 4 WEEK(S)
     Route: 042

REACTIONS (2)
  - Deafness [Unknown]
  - Off label use [Unknown]
